FAERS Safety Report 5870413-X (Version None)
Quarter: 2008Q3

REPORT INFORMATION
  Report Type: 
  Country: None (occurrence: None)
  Receive Date: 20080904
  Receipt Date: 20080304
  Transmission Date: 20090109
  Serious: No
  Sender: FDA-Public Use
  Company Number: US-BRISTOL-MYERS SQUIBB COMPANY-14101448

PATIENT
  Age: 72 Year
  Sex: Male

DRUGS (9)
  1. DEFINITY [Suspect]
     Indication: STRESS ECHOCARDIOGRAM
     Route: 042
  2. CHROMAGEN [Concomitant]
  3. VYTORIN [Concomitant]
  4. OMEPRAZOLE [Concomitant]
  5. LOTREL [Concomitant]
  6. METFORMIN HCL [Concomitant]
  7. LEVODOPA [Concomitant]
  8. CARBIDOPA [Concomitant]
  9. AMANTADINE HCL [Concomitant]

REACTIONS (2)
  - BACK PAIN [None]
  - HEADACHE [None]
